FAERS Safety Report 10790091 (Version 2)
Quarter: 2015Q1

REPORT INFORMATION
  Report Type: Spontaneous
  Country: US (occurrence: US)
  Receive Date: 20150212
  Receipt Date: 20150212
  Transmission Date: 20150721
  Serious: No
  Sender: FDA-Public Use
  Company Number: US-GLAXOSMITHKLINE-A1088854A

PATIENT
  Sex: Female

DRUGS (11)
  1. CHEMOTHERAPY [Concomitant]
     Active Substance: UNSPECIFIED INGREDIENT
  2. STEROIDS [Suspect]
     Active Substance: UNSPECIFIED INGREDIENT
  3. PROVENTIL [Concomitant]
     Active Substance: ALBUTEROL
  4. VITAMIN D [Concomitant]
     Active Substance: CHOLECALCIFEROL
  5. MULTIPLE VITAMIN [Concomitant]
     Active Substance: VITAMINS
  6. BLOOD PRESSURE MEDICATION [Concomitant]
     Active Substance: UNSPECIFIED INGREDIENT
  7. CALCIUM [Concomitant]
     Active Substance: CALCIUM
  8. ALLERGEN [Suspect]
     Active Substance: UNSPECIFIED INGREDIENT
  9. VITAMINS [Concomitant]
     Active Substance: VITAMINS
  10. ADVAIR DISKUS [Suspect]
     Active Substance: FLUTICASONE PROPIONATE\SALMETEROL XINAFOATE
     Indication: ASTHMA
     Dosage: 500/50 MCG
     Route: 055
  11. NEBULIZER [Concomitant]
     Active Substance: UNSPECIFIED INGREDIENT

REACTIONS (7)
  - Malaise [Unknown]
  - Productive cough [Unknown]
  - Wheezing [Unknown]
  - Asthma [Unknown]
  - Respiratory tract congestion [Unknown]
  - Headache [Unknown]
  - Rales [Unknown]
